FAERS Safety Report 6703545-4 (Version None)
Quarter: 2010Q2

REPORT INFORMATION
  Report Type: 
  Country: None (occurrence: None)
  Receive Date: 20100430
  Receipt Date: 20100423
  Transmission Date: 20101027
  Serious: Yes (Hospitalization, Other)
  Sender: FDA-Public Use
  Company Number: PHHO2010GB04974

PATIENT
  Sex: Male
  Weight: 75 kg

DRUGS (5)
  1. ZOLEDRONATE T29581+SOLINJ+BM [Suspect]
     Indication: METASTASES TO BONE
     Dosage: UNK
     Route: 042
     Dates: start: 20100225
  2. DOCETAXEL [Suspect]
     Dosage: UNK
     Dates: start: 20100225
  3. PREDNISOLONE [Concomitant]
     Dosage: UNK
     Dates: start: 20100225
  4. CALCIUM [Concomitant]
  5. VITAMIN D [Concomitant]

REACTIONS (4)
  - HYPOTENSION [None]
  - NEUTROPHIL COUNT DECREASED [None]
  - SEPSIS [None]
  - WHITE BLOOD CELL COUNT DECREASED [None]
